FAERS Safety Report 13561961 (Version 1)
Quarter: 2017Q2

REPORT INFORMATION
  Report Type: Spontaneous
  Country: GB (occurrence: GB)
  Receive Date: 20170518
  Receipt Date: 20170518
  Transmission Date: 20170830
  Serious: Yes (Death, Other)
  Sender: FDA-Public Use
  Company Number: GB-INTERNATIONAL MEDICATION SYSTEMS, LIMITED-2020969

PATIENT
  Age: 40 Year
  Sex: Male

DRUGS (6)
  1. HEROIN [Suspect]
     Active Substance: DIAMORPHINE
  2. CODEINE [Concomitant]
     Active Substance: CODEINE
  3. OXYCODONE HYDROCHLORIDE. [Suspect]
     Active Substance: OXYCODONE HYDROCHLORIDE
  4. PARACETAMOL [Concomitant]
     Active Substance: ACETAMINOPHEN
  5. MORPHINE SULFATE. [Suspect]
     Active Substance: MORPHINE SULFATE
  6. DIAZEPAM. [Suspect]
     Active Substance: DIAZEPAM
     Indication: PRODUCT USED FOR UNKNOWN INDICATION

REACTIONS (6)
  - Cardiac arrest [Fatal]
  - Overdose [Fatal]
  - Death [Fatal]
  - Drug use disorder [Fatal]
  - Toxicity to various agents [None]
  - Intentional product misuse [Fatal]
